FAERS Safety Report 7680244-6 (Version None)
Quarter: 2011Q3

REPORT INFORMATION
  Report Type: 
  Country: None (occurrence: None)
  Receive Date: 20110812
  Receipt Date: 20110805
  Transmission Date: 20111222
  Serious: Yes (Death)
  Sender: FDA-Public Use
  Company Number: US-ACTELION-A-US2011-50354

PATIENT

DRUGS (6)
  1. TRACLEER [Suspect]
     Indication: PULMONARY ARTERIAL HYPERTENSION
     Dosage: 31.25 MG, BID
     Route: 048
     Dates: start: 20091201, end: 20110521
  2. OMEPRAZOLE [Concomitant]
  3. FUROSEMIDE [Concomitant]
  4. SPIRONOLACTONE [Concomitant]
  5. TRACLEER [Suspect]
     Dosage: 31.25 MG, QD
     Route: 048
     Dates: start: 20090201, end: 20091201
  6. SILDENAFIL CITRATE [Concomitant]

REACTIONS (5)
  - CYANOSIS [None]
  - PULMONARY HYPERTENSIVE CRISIS [None]
  - AGITATION [None]
  - CARDIAC ARREST [None]
  - METABOLIC ACIDOSIS [None]
